FAERS Safety Report 9473292 (Version 1)
Quarter: 2013Q3

REPORT INFORMATION
  Report Type: Spontaneous
  Country: US (occurrence: US)
  Receive Date: 20130823
  Receipt Date: 20130823
  Transmission Date: 20140515
  Serious: Yes (Other)
  Sender: FDA-Public Use
  Company Number: US-BRISTOL-MYERS SQUIBB COMPANY-18856310

PATIENT
  Age: 58 Year
  Sex: Female
  Weight: 73.92 kg

DRUGS (10)
  1. SPRYCEL [Suspect]
     Indication: CHRONIC MYELOID LEUKAEMIA
     Route: 048
     Dates: start: 20130329
  2. CALCIUM [Concomitant]
  3. FAMVIR [Concomitant]
  4. GLUCOSAMINE [Concomitant]
  5. IMODIUM [Concomitant]
  6. LEVAQUIN [Concomitant]
  7. MULTIVITAMIN [Concomitant]
  8. TYLENOL [Concomitant]
  9. VITAMIN C [Concomitant]
  10. VITAMIN D [Concomitant]

REACTIONS (11)
  - Thrombosis [Unknown]
  - Muscular weakness [Recovered/Resolved]
  - Pain in extremity [Recovered/Resolved]
  - Dysgeusia [Unknown]
  - Gingival swelling [Unknown]
  - Parosmia [Unknown]
  - Thirst [Unknown]
  - Diarrhoea [Unknown]
  - Headache [Unknown]
  - Fatigue [Unknown]
  - Nasopharyngitis [Unknown]
